FAERS Safety Report 18996270 (Version 1)
Quarter: 2021Q1

REPORT INFORMATION
  Report Type: Spontaneous
  Country: US (occurrence: US)
  Receive Date: 20210310
  Receipt Date: 20210310
  Transmission Date: 20210420
  Serious: Yes (Other)
  Sender: FDA-Public Use
  Company Number: None

PATIENT
  Age: 50 Year
  Sex: Female
  Weight: 81 kg

DRUGS (5)
  1. LEVOTHYROXINE. [Concomitant]
     Active Substance: LEVOTHYROXINE
  2. PLENVU [Suspect]
     Active Substance: ASCORBIC ACID\POLYETHYLENE GLYCOL 3350\POTASSIUM CHLORIDE\SODIUM ASCORBATE\SODIUM CHLORIDE\SODIUM SULFATE
     Indication: BOWEL PREPARATION
     Dosage: ?          OTHER FREQUENCY:ONE PACKAGE;?
     Route: 048
     Dates: start: 20210112, end: 20210112
  3. VITAMINS [Concomitant]
     Active Substance: VITAMINS
  4. SUPPLEMENTS [Concomitant]
     Active Substance: UNSPECIFIED INGREDIENT
  5. LIOTHYROXINE [Concomitant]

REACTIONS (12)
  - Flushing [None]
  - Pulmonary congestion [None]
  - Rhinorrhoea [None]
  - Asthenia [None]
  - Gait disturbance [None]
  - Presyncope [None]
  - Paraesthesia [None]
  - Anaphylactic reaction [None]
  - Feeling abnormal [None]
  - Vomiting [None]
  - Tremor [None]
  - Neck pain [None]

NARRATIVE: CASE EVENT DATE: 20210112
